FAERS Safety Report 9724098 (Version 2)
Quarter: 2014Q1

REPORT INFORMATION
  Report Type: Spontaneous
  Country: US (occurrence: US)
  Receive Date: 20131202
  Receipt Date: 20140203
  Transmission Date: 20141002
  Serious: Yes (Other)
  Sender: FDA-Public Use
  Company Number: US-AMGEN-USASP2013078657

PATIENT
  Age: 28 Year
  Sex: Female
  Weight: 70.75 kg

DRUGS (2)
  1. ENBREL [Suspect]
     Indication: RHEUMATOID ARTHRITIS
     Dosage: UNK UNK, QWK
     Route: 065
     Dates: start: 200702, end: 20090214
  2. PRENATAL                           /00231801/ [Concomitant]
     Dosage: UNK UNK, QD

REACTIONS (1)
  - Kidney infection [Recovered/Resolved]
